FAERS Safety Report 9468930 (Version 1)
Quarter: 2013Q3

REPORT INFORMATION
  Report Type: Spontaneous
  Country: GB (occurrence: None)
  Receive Date: 20130815
  Receipt Date: 20130815
  Transmission Date: 20140515
  Serious: Yes (Other)
  Sender: FDA-Public Use
  Company Number: AUR-APL-2013-06562

PATIENT
  Age: 26 Year
  Sex: Female
  Weight: 70.3 kg

DRUGS (1)
  1. SERTRALINE (SERTRALINE) [Suspect]
     Indication: ANXIETY
     Route: 048
     Dates: start: 20130505

REACTIONS (8)
  - Anxiety [None]
  - Orgasmic sensation decreased [None]
  - Acne [None]
  - Pollakiuria [None]
  - Weight increased [None]
  - Paranoia [None]
  - Anorgasmia [None]
  - Sexual dysfunction [None]
